FAERS Safety Report 7383984-1 (Version None)
Quarter: 2011Q1

REPORT INFORMATION
  Report Type: 
  Country: None (occurrence: None)
  Receive Date: 20110330
  Receipt Date: 20110321
  Transmission Date: 20110831
  Serious: Yes (Other)
  Sender: FDA-Public Use
  Company Number: FR-ASTRAZENECA-2011SE17237

PATIENT
  Age: 712 Month
  Sex: Male

DRUGS (8)
  1. MEDROL [Suspect]
     Route: 048
     Dates: start: 20020101
  2. COZAAR [Suspect]
     Route: 048
  3. IMUREL [Suspect]
     Route: 048
     Dates: start: 20021026, end: 20110103
  4. ASPEGIC ENFANTS [Suspect]
     Route: 048
  5. NEXIUM [Suspect]
     Route: 048
  6. LEXOMIL ROCHE [Suspect]
     Dates: start: 20020101
  7. TAHOR [Suspect]
     Route: 048
  8. STILNOX [Suspect]
     Route: 048
     Dates: start: 20020101

REACTIONS (1)
  - SKIN CANCER [None]
